FAERS Safety Report 9452403 (Version 2)
Quarter: 2013Q3

REPORT INFORMATION
  Report Type: Spontaneous
  Country: NL (occurrence: NL)
  Receive Date: 20130812
  Receipt Date: 20130827
  Transmission Date: 20140515
  Serious: Yes (Disabling, Other)
  Sender: FDA-Public Use
  Company Number: NL-ACCORD-018865

PATIENT
  Age: 47 Year
  Sex: Female
  Weight: 80.8 kg

DRUGS (3)
  1. CISPLATIN [Suspect]
     Indication: BLADDER CANCER
     Dosage: RECEIVED A 2ND ROUND OF NEO-ADJUVANT CHEMOTHERAPY AT A DOSE 135.8 MG (=70 MG/M^2)
     Route: 042
     Dates: start: 20130619, end: 20130717
  2. GEMCITABINE [Concomitant]
     Indication: BLADDER CANCER
     Dosage: RECEIVED A 2ND ROUND OF NEO-ADJUVANT CHEMOTHERAPY AT A DOSE 1940 MG ON DAY 1, 8 AND 15
     Route: 042
     Dates: start: 20130618, end: 20130723
  3. METFORMINE [Concomitant]
     Indication: DIABETES MELLITUS
     Route: 048

REACTIONS (1)
  - Arterial occlusive disease [Not Recovered/Not Resolved]
